FAERS Safety Report 11919800 (Version 2)
Quarter: 2016Q1

REPORT INFORMATION
  Report Type: Spontaneous
  Country: ME (occurrence: ME)
  Receive Date: 20160115
  Receipt Date: 20160226
  Transmission Date: 20160526
  Serious: Yes (Other)
  Sender: FDA-Public Use
  Company Number: ME-SUN PHARMACEUTICAL INDUSTRIES LTD-2016RR-109658

PATIENT

DRUGS (1)
  1. ISOTRETINOIN [Suspect]
     Active Substance: ISOTRETINOIN
     Indication: ACNE
     Dosage: 60 MG, DAILY (0.7 MG/KG)
     Route: 065

REACTIONS (1)
  - Pyogenic granuloma [Recovered/Resolved]
